FAERS Safety Report 15805415 (Version 1)
Quarter: 2019Q1

REPORT INFORMATION
  Report Type: Spontaneous
  Country: US (occurrence: US)
  Receive Date: 20190110
  Receipt Date: 20190110
  Transmission Date: 20190417
  Serious: No
  Sender: FDA-Public Use
  Company Number: US-AMGEN-USASP2019002534

PATIENT
  Age: 72 Year
  Sex: Female

DRUGS (26)
  1. PROAIR HFA [Concomitant]
     Active Substance: ALBUTEROL SULFATE
  2. ENBREL [Suspect]
     Active Substance: ETANERCEPT
     Indication: RHEUMATOID ARTHRITIS
     Dosage: 50 MG, QWK
     Route: 058
  3. VALSARTAN AND HYDROCHLOROTHIAZIDE [Concomitant]
     Active Substance: HYDROCHLOROTHIAZIDE\VALSARTAN
  4. ACETAMINOPHEN. [Concomitant]
     Active Substance: ACETAMINOPHEN
  5. LORAZEPAM. [Concomitant]
     Active Substance: LORAZEPAM
  6. PROVENTIL HFA [Concomitant]
     Active Substance: ALBUTEROL SULFATE
  7. RESTASIS [Concomitant]
     Active Substance: CYCLOSPORINE
  8. ADVAIR HFA [Concomitant]
     Active Substance: FLUTICASONE PROPIONATE\SALMETEROL XINAFOATE
  9. NASONEX [Concomitant]
     Active Substance: MOMETASONE FUROATE
  10. LEVAQUIN [Concomitant]
     Active Substance: LEVOFLOXACIN
  11. BENZONATATE. [Concomitant]
     Active Substance: BENZONATATE
  12. DIAZEPAM. [Concomitant]
     Active Substance: DIAZEPAM
  13. MYRBETRIQ [Concomitant]
     Active Substance: MIRABEGRON
  14. LEVOFLOXACIN. [Concomitant]
     Active Substance: LEVOFLOXACIN
  15. REDNISONE [Concomitant]
  16. HYDROCODONE [Concomitant]
     Active Substance: HYDROCODONE
  17. AZITHROMYCIN ANHYDROUS. [Concomitant]
     Active Substance: AZITHROMYCIN ANHYDROUS
  18. PROMETHAZINE - CODEINE [Concomitant]
     Active Substance: CODEINE\PROMETHAZINE
  19. MINIVELLE [Concomitant]
     Active Substance: ESTRADIOL
  20. CEFADROXIL. [Concomitant]
     Active Substance: CEFADROXIL
  21. ASTEPRO [Concomitant]
     Active Substance: AZELASTINE HYDROCHLORIDE
  22. MONTELUKAST SODIUM. [Concomitant]
     Active Substance: MONTELUKAST SODIUM
  23. MUPIROCIN. [Concomitant]
     Active Substance: MUPIROCIN
  24. PANTOPRAZOLE SODIUM. [Concomitant]
     Active Substance: PANTOPRAZOLE SODIUM
  25. CEPHALEXIN. [Concomitant]
     Active Substance: CEPHALEXIN
  26. ACYCLOVIR. [Concomitant]
     Active Substance: ACYCLOVIR

REACTIONS (1)
  - Product dose omission [Unknown]
